FAERS Safety Report 17242425 (Version 2)
Quarter: 2020Q4

REPORT INFORMATION
  Report Type: Spontaneous
  Country: US (occurrence: US)
  Receive Date: 20200107
  Receipt Date: 20201130
  Transmission Date: 20210113
  Serious: Yes (Other)
  Sender: FDA-Public Use
  Company Number: US-AMNEAL PHARMACEUTICALS-2019-AMRX-02596

PATIENT
  Age: 6 Year
  Sex: Female

DRUGS (2)
  1. VIGABATRIN. [Suspect]
     Active Substance: VIGABATRIN
     Indication: EPILEPSY
     Dosage: 500 MILLIGRAM, 2 PACKETS, 2 /DAY
     Route: 048
     Dates: end: 20191102
  2. VIGABATRIN. [Suspect]
     Active Substance: VIGABATRIN
     Dosage: 1000 MILLIGRAM, 2 /DAY
     Route: 048

REACTIONS (3)
  - Lower limb fracture [Unknown]
  - Dyspnoea [Unknown]
  - Condition aggravated [Unknown]

NARRATIVE: CASE EVENT DATE: 20191102
